FAERS Safety Report 9339218 (Version 1)
Quarter: 2013Q2

REPORT INFORMATION
  Report Type: Spontaneous
  Country: US (occurrence: None)
  Receive Date: 20130606
  Receipt Date: 20130606
  Transmission Date: 20140414
  Serious: Yes (Hospitalization)
  Sender: FDA-Public Use
  Company Number: None

PATIENT
  Age: 46 Year
  Sex: Female

DRUGS (1)
  1. STELARA [Suspect]
     Indication: PSORIASIS
     Dosage: EVERY 12 WEEKS
     Route: 058
     Dates: start: 20120117, end: 20130604

REACTIONS (2)
  - Hypersensitivity [None]
  - Visual impairment [None]
